FAERS Safety Report 21614817 (Version 1)
Quarter: 2022Q4

REPORT INFORMATION
  Report Type: Spontaneous
  Country: US (occurrence: None)
  Receive Date: 20221118
  Receipt Date: 20221118
  Transmission Date: 20230113
  Serious: Yes (Hospitalization, Other)
  Sender: FDA-Public Use
  Company Number: None

PATIENT
  Age: 61 Year
  Sex: Male
  Weight: 76.5 kg

DRUGS (2)
  1. BOTOX [Suspect]
     Active Substance: ONABOTULINUMTOXINA
  2. BOTOX [Concomitant]
     Active Substance: ONABOTULINUMTOXINA
     Dates: start: 20221104, end: 20221104

REACTIONS (4)
  - Eyelid ptosis [None]
  - Dysphagia [None]
  - Dyspnoea [None]
  - Acquired diaphragmatic eventration [None]

NARRATIVE: CASE EVENT DATE: 20221111
